FAERS Safety Report 5145973-7 (Version None)
Quarter: 2006Q4

REPORT INFORMATION
  Report Type: 
  Country: None (occurrence: None)
  Receive Date: 20061108
  Receipt Date: 20061106
  Transmission Date: 20070319
  Serious: Yes (Hospitalization, Other)
  Sender: FDA-Public Use
  Company Number: GB-BRISTOL-MYERS SQUIBB COMPANY-13567425

PATIENT
  Age: 22 Year
  Sex: Male

DRUGS (4)
  1. ETOPOSIDE [Suspect]
     Indication: ACUTE PROMYELOCYTIC LEUKAEMIA
  2. CYCLOPHOSPHAMIDE [Concomitant]
     Indication: ACUTE PROMYELOCYTIC LEUKAEMIA
  3. RADIATION THERAPY [Concomitant]
  4. HEMATOPOETIC PROGENITOR CELLS HUMAN [Concomitant]
     Indication: ACUTE PROMYELOCYTIC LEUKAEMIA

REACTIONS (1)
  - SALIVARY GLAND CANCER [None]
